FAERS Safety Report 15221975 (Version 1)
Quarter: 2018Q3

REPORT INFORMATION
  Report Type: Spontaneous
  Country: FR (occurrence: FR)
  Receive Date: 20180731
  Receipt Date: 20180731
  Transmission Date: 20181010
  Serious: Yes (Disabling)
  Sender: FDA-Public Use
  Company Number: FR-ALLERGAN-1837296US

PATIENT
  Age: 73 Year
  Sex: Female

DRUGS (10)
  1. RILMENIDINE [Concomitant]
     Active Substance: RILMENIDINE
  2. DIFFU K [Concomitant]
     Active Substance: POTASSIUM CHLORIDE
  3. RISPERDAL [Suspect]
     Active Substance: RISPERIDONE
     Indication: AGITATION
     Dosage: 2 MG, QD
     Route: 048
     Dates: start: 2016
  4. FOSAVANCE [Concomitant]
     Active Substance: ALENDRONATE SODIUM\CHOLECALCIFEROL
  5. CACIT VITAMIN D3 [Concomitant]
     Active Substance: CALCIUM CARBONATE\CHOLECALCIFEROL
  6. IRBESARTAN. [Concomitant]
     Active Substance: IRBESARTAN
  7. FUROSEMIDE. [Concomitant]
     Active Substance: FUROSEMIDE
  8. AMITRIPTYLINE [Suspect]
     Active Substance: AMITRIPTYLINE
     Indication: AGITATION
     Dosage: 10 GTT, UNK
     Route: 048
  9. MEMANTINE HCL ? BP [Suspect]
     Active Substance: MEMANTINE
     Indication: PRODUCT USED FOR UNKNOWN INDICATION
     Route: 065
  10. OXAZEPAM. [Concomitant]
     Active Substance: OXAZEPAM

REACTIONS (1)
  - Parkinsonism [Not Recovered/Not Resolved]

NARRATIVE: CASE EVENT DATE: 201710
